FAERS Safety Report 6033087-3 (Version None)
Quarter: 2009Q1

REPORT INFORMATION
  Report Type: 
  Country: None (occurrence: None)
  Receive Date: 20090109
  Receipt Date: 20090105
  Transmission Date: 20090719
  Serious: Yes (Hospitalization)
  Sender: FDA-Public Use
  Company Number: PHHO2008NL14392

PATIENT
  Sex: Male
  Weight: 78 kg

DRUGS (7)
  1. ZOLEDRONIC ACID [Suspect]
     Indication: METASTASES TO BONE
     Dosage: 4 MG, Q3MO
     Route: 042
     Dates: start: 20060302
  2. CALCIUM [Concomitant]
  3. VITAMIN D [Concomitant]
  4. VENTOLIN [Concomitant]
  5. SERETIDE [Concomitant]
  6. VESICARE [Concomitant]
  7. BECLOMETHASONE DIPROPIONATE [Concomitant]

REACTIONS (6)
  - BLINDNESS [None]
  - HEADACHE [None]
  - HEMIANOPIA [None]
  - HYPERTENSIVE ENCEPHALOPATHY [None]
  - NAUSEA [None]
  - NUCLEAR MAGNETIC RESONANCE IMAGING BRAIN ABNORMAL [None]
